FAERS Safety Report 9154355 (Version 1)
Quarter: 2013Q1

REPORT INFORMATION
  Report Type: Spontaneous
  Country: US (occurrence: US)
  Receive Date: 20130311
  Receipt Date: 20130311
  Transmission Date: 20140127
  Serious: Yes (Hospitalization)
  Sender: FDA-Public Use
  Company Number: US-ELI_LILLY_AND_COMPANY-US201302010251

PATIENT
  Sex: Female

DRUGS (2)
  1. ADCIRCA [Suspect]
     Route: 048
  2. LETAIRIS [Concomitant]
     Indication: COR PULMONALE CHRONIC
     Dosage: 10 MG, QD
     Route: 048

REACTIONS (4)
  - Tremor [Unknown]
  - Pneumonia [Unknown]
  - Infection [Unknown]
  - Constipation [Unknown]
